FAERS Safety Report 7503059-8 (Version None)
Quarter: 2011Q2

REPORT INFORMATION
  Report Type: 
  Country: None (occurrence: None)
  Receive Date: 20110524
  Receipt Date: 20110524
  Transmission Date: 20111010
  Serious: Yes (Other)
  Sender: FDA-Public Use
  Company Number: None

PATIENT
  Age: 52 Year
  Sex: Male

DRUGS (2)
  1. TEMODAR [Suspect]
     Dosage: 5MG 1QD PO
     Route: 048
  2. TEMODAR [Suspect]
     Indication: GLIOBLASTOMA
     Dosage: 140MG 1QD PO PT HAS BEEN TAKING PREVIOUSLY-DATES UNKNOWN
     Route: 048

REACTIONS (4)
  - FATIGUE [None]
  - HEADACHE [None]
  - DYSPHONIA [None]
  - NASAL DRYNESS [None]
